FAERS Safety Report 5511607-2 (Version None)
Quarter: 2007Q4

REPORT INFORMATION
  Report Type: 
  Country: None (occurrence: None)
  Receive Date: 20071109
  Receipt Date: 20071030
  Transmission Date: 20080405
  Serious: Yes (Hospitalization)
  Sender: FDA-Public Use
  Company Number: US-ELI_LILLY_AND_COMPANY-US200710007395

PATIENT
  Sex: Male

DRUGS (1)
  1. SOMATROPIN [Suspect]
     Dosage: UNK UG, DAILY (1/D)
     Dates: start: 20070427

REACTIONS (1)
  - INJURY [None]
